FAERS Safety Report 4974026-3 (Version None)
Quarter: 2006Q2

REPORT INFORMATION
  Report Type: 
  Country: None (occurrence: None)
  Receive Date: 20060417
  Receipt Date: 20060407
  Transmission Date: 20061013
  Serious: Yes (Hospitalization)
  Sender: FDA-Public Use
  Company Number: US-JNJFOC-20060304507

PATIENT
  Sex: Female
  Weight: 49.9 kg

DRUGS (2)
  1. REMICADE [Suspect]
     Route: 042
  2. REMICADE [Suspect]
     Route: 042

REACTIONS (5)
  - PLATELET COUNT DECREASED [None]
  - RETICULOCYTE COUNT DECREASED [None]
  - SEPSIS [None]
  - TUBAL LIGATION [None]
  - WHITE BLOOD CELL COUNT DECREASED [None]
